FAERS Safety Report 9028087 (Version 2)
Quarter: 2013Q2

REPORT INFORMATION
  Report Type: Spontaneous
  Country: US (occurrence: None)
  Receive Date: 20120525
  Receipt Date: 20120827
  Transmission Date: 20140414
  Serious: Yes (Other)
  Sender: FDA-Public Use
  Company Number: 343960

PATIENT
  Age: 53 Year
  Sex: Female
  Weight: 84.4 kg

DRUGS (6)
  1. VICTOZA (LIRAGLUTIDE) SOLUTION FOR INJECTION, 6MG/ML [Suspect]
     Indication: TYPE 2 DIABETES MELLITUS
     Route: 058
     Dates: start: 20110525, end: 20120118
  2. METFORMIN ER (METFORMIN HYDROCHLORIDE) [Concomitant]
  3. PRAVASTATIN (PRAVASTATIN SODIUM) [Concomitant]
  4. GLIMEPIRIDE [Concomitant]
  5. PANTOPRAZOLE [Concomitant]
  6. HYDROCHLOROTHIAZIDE [Concomitant]

REACTIONS (2)
  - Pancreatitis acute [None]
  - Sensation of foreign body [None]
